FAERS Safety Report 4383313-1 (Version None)
Quarter: 2004Q2

REPORT INFORMATION
  Report Type: 
  Country: None (occurrence: None)
  Receive Date: 20040618
  Receipt Date: 20040604
  Transmission Date: 20050107
  Serious: Yes (Other)
  Sender: FDA-Public Use
  Company Number: FABR-10629

PATIENT
  Age: 43 Year
  Sex: Male
  Weight: 65 kg

DRUGS (3)
  1. FABRAZYME [Suspect]
     Indication: FABRY'S DISEASE
     Dosage: 70 MG Q2WKS IV
     Route: 042
     Dates: start: 20040401
  2. ASS (ASPIRIN) [Concomitant]
  3. KREON [Concomitant]

REACTIONS (4)
  - BLOOD PRESSURE DECREASED [None]
  - BRADYCARDIA [None]
  - FEELING ABNORMAL [None]
  - INFUSION RELATED REACTION [None]
